FAERS Safety Report 4866802-2 (Version None)
Quarter: 2005Q4

REPORT INFORMATION
  Report Type: 
  Country: None (occurrence: None)
  Receive Date: 20051222
  Receipt Date: 20051209
  Transmission Date: 20060501
  Serious: Yes (Hospitalization)
  Sender: FDA-Public Use
  Company Number: 2005168630

PATIENT
  Age: 50 Year
  Sex: Female

DRUGS (1)
  1. IRINOTECAN HCL [Suspect]
     Indication: GALLBLADDER CANCER
     Dosage: 100-150 MILLIGRAMS
     Dates: start: 20050405, end: 20051130

REACTIONS (1)
  - CHOLANGITIS [None]
